FAERS Safety Report 7414525-8 (Version None)
Quarter: 2011Q2

REPORT INFORMATION
  Report Type: 
  Country: None (occurrence: None)
  Receive Date: 20110414
  Receipt Date: 20110329
  Transmission Date: 20111010
  Serious: Yes (Other)
  Sender: FDA-Public Use
  Company Number: NL-PFIZER INC-2011071399

PATIENT
  Age: 39 Year
  Sex: Female

DRUGS (1)
  1. SERTRALINE [Suspect]
     Indication: DEPRESSED MOOD
     Dosage: 50 MG, 1X/DAY
     Dates: start: 20110222, end: 20110308

REACTIONS (8)
  - PALPITATIONS [None]
  - TRISMUS [None]
  - INSOMNIA [None]
  - HYPERHIDROSIS [None]
  - HALLUCINATION [None]
  - TREMOR [None]
  - ABDOMINAL DISCOMFORT [None]
  - DYSGEUSIA [None]
